FAERS Safety Report 22260555 (Version 1)
Quarter: 2023Q2

REPORT INFORMATION
  Report Type: Spontaneous
  Country: None (occurrence: DE)
  Receive Date: 20230427
  Receipt Date: 20230427
  Transmission Date: 20230722
  Serious: Yes (Life-Threatening, Hospitalization, Other)
  Sender: FDA-Public Use
  Company Number: DE-B.Braun Medical Inc.-2140852

PATIENT
  Age: 62 Year
  Sex: Male

DRUGS (38)
  1. DEXTROSE MONOHYDRATE\THEOPHYLLINE\THEOPHYLLINE ANHYDROUS [Suspect]
     Active Substance: DEXTROSE MONOHYDRATE\THEOPHYLLINE\THEOPHYLLINE ANHYDROUS
     Indication: Chronic obstructive pulmonary disease
  2. HALOPERIDOL [Concomitant]
     Active Substance: HALOPERIDOL
  3. Delix [Concomitant]
  4. FRUCTOSE\INSULIN BEEF [Concomitant]
     Active Substance: FRUCTOSE\INSULIN BEEF
  5. RINGERLOESUNG [Concomitant]
  6. CALCIUM CARBONATE\CHOLECALCIFEROL [Suspect]
     Active Substance: CALCIUM CARBONATE\CHOLECALCIFEROL
  7. MOXIFLOXACIN HYDROCHLORIDE [Suspect]
     Active Substance: MOXIFLOXACIN HYDROCHLORIDE
  8. BEROTEC [Suspect]
     Active Substance: FENOTEROL HYDROBROMIDE
  9. MINERALS\VITAMINS [Suspect]
     Active Substance: MINERALS\VITAMINS
  10. NORVASC [Suspect]
     Active Substance: AMLODIPINE BESYLATE
  11. PREDNISOLONE [Suspect]
     Active Substance: PREDNISOLONE
  12. PREDNISOLONE [Suspect]
     Active Substance: PREDNISOLONE
  13. ISOPTIN [Suspect]
     Active Substance: VERAPAMIL HYDROCHLORIDE
  14. ACETYLCYSTEINE [Suspect]
     Active Substance: ACETYLCYSTEINE
  15. CLORAZEPATE DIPOTASSIUM [Suspect]
     Active Substance: CLORAZEPATE DIPOTASSIUM
  16. CHOLECALCIFEROL [Suspect]
     Active Substance: CHOLECALCIFEROL
  17. PHENPROCOUMON [Suspect]
     Active Substance: PHENPROCOUMON
  18. CLONIDINE [Suspect]
     Active Substance: CLONIDINE
  19. BECLOMETHASONE DIPROPIONATE [Suspect]
     Active Substance: BECLOMETHASONE DIPROPIONATE
  20. FORADIL [Suspect]
     Active Substance: FORMOTEROL FUMARATE
  21. SPIRIVA [Suspect]
     Active Substance: TIOTROPIUM BROMIDE MONOHYDRATE
  22. CITRIC ACID MONOHYDRATE\POTASSIUM BICARBONATE\POTASSIUM CITRATE [Suspect]
     Active Substance: CITRIC ACID MONOHYDRATE\POTASSIUM BICARBONATE\POTASSIUM CITRATE
  23. OXAZEPAM [Suspect]
     Active Substance: OXAZEPAM
  24. CLOMETHIAZOLE [Suspect]
     Active Substance: CLOMETHIAZOLE
  25. HYDROCHLOROTHIAZIDE\RAMIPRIL [Suspect]
     Active Substance: HYDROCHLOROTHIAZIDE\RAMIPRIL
  26. FLUTICASONE PROPIONATE\SALMETEROL XINAFOATE [Suspect]
     Active Substance: FLUTICASONE PROPIONATE\SALMETEROL XINAFOATE
  27. PANTOZOL [Suspect]
     Active Substance: PANTOPRAZOLE SODIUM
  28. OMEPRAZOLE [Suspect]
     Active Substance: OMEPRAZOLE
  29. VERAPAMIL HYDROCHLORIDE [Suspect]
     Active Substance: VERAPAMIL HYDROCHLORIDE
  30. MARCUMAR [Suspect]
     Active Substance: PHENPROCOUMON
  31. HEPARIN SODIUM [Suspect]
     Active Substance: HEPARIN SODIUM
  32. INSULIN NOS [Suspect]
     Active Substance: INSULIN NOS
  33. OMEPRAZOLE [Suspect]
     Active Substance: OMEPRAZOLE
  34. NITROGLYCERIN [Suspect]
     Active Substance: NITROGLYCERIN
  35. DIGITOXIN [Suspect]
     Active Substance: DIGITOXIN
  36. BRICANYL [Suspect]
     Active Substance: TERBUTALINE SULFATE
  37. AMBROXOL [Suspect]
     Active Substance: AMBROXOL
  38. FUROSEMIDE [Suspect]
     Active Substance: FUROSEMIDE

REACTIONS (6)
  - Toxic epidermal necrolysis [Recovered/Resolved]
  - Stevens-Johnson syndrome [Recovered/Resolved]
  - Pruritus [Recovered/Resolved]
  - Blister [Unknown]
  - Nikolsky^s sign [Unknown]
  - Pyrexia [Unknown]
